FAERS Safety Report 10047534 (Version 1)
Quarter: 2014Q1

REPORT INFORMATION
  Report Type: Spontaneous
  Country: JP (occurrence: JP)
  Receive Date: 20140331
  Receipt Date: 20140331
  Transmission Date: 20141002
  Serious: Yes (Hospitalization, Disabling)
  Sender: FDA-Public Use
  Company Number: JP-SA-2014SA038817

PATIENT
  Age: 83 Year
  Sex: Male

DRUGS (7)
  1. PLAVIX [Suspect]
     Indication: CEREBRAL INFARCTION
     Route: 048
     Dates: start: 201201
  2. CARDENALIN [Concomitant]
     Indication: HYPERTENSION
     Route: 048
  3. BLOPRESS [Concomitant]
     Indication: HYPERTENSION
     Route: 048
  4. NIFEDIPINE [Concomitant]
     Indication: HYPERTENSION
     Route: 048
  5. LIPITOR [Concomitant]
     Indication: DYSLIPIDAEMIA
     Route: 048
  6. MADOPAR [Concomitant]
     Indication: PARKINSON^S DISEASE
     Route: 048
  7. LASIX [Concomitant]
     Indication: RENAL FAILURE CHRONIC
     Dosage: 5 TABLETS
     Route: 048

REACTIONS (5)
  - Cerebral haemorrhage [Recovered/Resolved with Sequelae]
  - Haemoglobin decreased [Recovered/Resolved with Sequelae]
  - Haematocrit decreased [Recovered/Resolved with Sequelae]
  - Prothrombin time prolonged [Recovered/Resolved with Sequelae]
  - Hemiparesis [Unknown]
